FAERS Safety Report 21971881 (Version 3)
Quarter: 2023Q4

REPORT INFORMATION
  Report Type: Spontaneous
  Country: CA (occurrence: CA)
  Receive Date: 20230209
  Receipt Date: 20231218
  Transmission Date: 20240110
  Serious: Yes (Hospitalization, Other)
  Sender: FDA-Public Use
  Company Number: CA-CELLTRION INC.-2022CA006047

PATIENT

DRUGS (13)
  1. INFLECTRA [Suspect]
     Active Substance: INFLIXIMAB-DYYB
     Indication: Crohn^s disease
     Dosage: 1071 MG, EVERY 4 WEEKS
     Route: 042
     Dates: start: 20220509
  2. INFLECTRA [Suspect]
     Active Substance: INFLIXIMAB-DYYB
     Dosage: 1071 MG, EVERY 4 WEEKS
     Route: 042
     Dates: start: 20220509
  3. INFLECTRA [Suspect]
     Active Substance: INFLIXIMAB-DYYB
     Dosage: 1071 MG, EVERY 4 WEEKS
     Route: 042
     Dates: start: 20220704
  4. INFLECTRA [Suspect]
     Active Substance: INFLIXIMAB-DYYB
     Dosage: 1071 MG, EVERY 4 WEEKS
     Route: 042
     Dates: start: 20220926
  5. INFLECTRA [Suspect]
     Active Substance: INFLIXIMAB-DYYB
     Dosage: 1071 MG, EVERY 4 WEEKS
     Route: 042
     Dates: start: 20221121
  6. INFLECTRA [Suspect]
     Active Substance: INFLIXIMAB-DYYB
     Dosage: 1071 MG, EVERY 4 WEEKS
     Route: 042
     Dates: start: 20221121
  7. INFLECTRA [Suspect]
     Active Substance: INFLIXIMAB-DYYB
     Dosage: 1071 MG, EVERY 4 WEEKS
     Route: 042
     Dates: start: 20221230
  8. INFLECTRA [Suspect]
     Active Substance: INFLIXIMAB-DYYB
     Dosage: 1071 MG, EVERY 4 WEEKS
     Route: 042
     Dates: start: 20221230
  9. INFLECTRA [Suspect]
     Active Substance: INFLIXIMAB-DYYB
     Dosage: 1071 MG, EVERY 4 WEEKS
     Route: 042
     Dates: start: 20221230
  10. INFLECTRA [Suspect]
     Active Substance: INFLIXIMAB-DYYB
     Dosage: 1071 MG, EVERY 4 WEEKS
     Route: 042
     Dates: start: 20221230
  11. INFLECTRA [Suspect]
     Active Substance: INFLIXIMAB-DYYB
     Dosage: 1071 MG, EVERY 4 WEEKS
     Route: 042
     Dates: start: 20230130
  12. INFLECTRA [Suspect]
     Active Substance: INFLIXIMAB-DYYB
     Dosage: 1071 MG, EVERY 4 WEEKS
     Route: 042
     Dates: start: 20231109
  13. INFLECTRA [Suspect]
     Active Substance: INFLIXIMAB-DYYB
     Dosage: 1071 MG, EVERY 4 WEEKS (1071 MG, AFTER 4 WEEKS)
     Route: 042
     Dates: start: 20231207

REACTIONS (12)
  - Intestinal obstruction [Recovered/Resolved]
  - Dehydration [Not Recovered/Not Resolved]
  - Renal disorder [Not Recovered/Not Resolved]
  - Small intestinal obstruction [Recovered/Resolved]
  - Hypertension [Recovered/Resolved]
  - Influenza [Recovered/Resolved]
  - Ear infection [Recovered/Resolved]
  - Body temperature decreased [Unknown]
  - Therapeutic product effect incomplete [Unknown]
  - Off label use [Unknown]
  - Intentional product use issue [Unknown]
  - Off label use [Unknown]

NARRATIVE: CASE EVENT DATE: 20220509
